FAERS Safety Report 19447054 (Version 1)
Quarter: 2021Q2

REPORT INFORMATION
  Report Type: Spontaneous
  Country: US (occurrence: US)
  Receive Date: 20210622
  Receipt Date: 20210622
  Transmission Date: 20210717
  Serious: No
  Sender: FDA-Public Use
  Company Number: US-HIKMA PHARMACEUTICALS USA INC.-US-H14001-21-01613

PATIENT

DRUGS (1)
  1. FLUTICASONE. [Suspect]
     Active Substance: FLUTICASONE
     Indication: SEASONAL ALLERGY
     Dosage: UNKNOWN
     Route: 045
     Dates: start: 202103

REACTIONS (3)
  - Condition aggravated [Unknown]
  - Headache [Unknown]
  - Seasonal allergy [Unknown]

NARRATIVE: CASE EVENT DATE: 202103
